FAERS Safety Report 17476849 (Version 1)
Quarter: 2020Q1

REPORT INFORMATION
  Report Type: Report from Study
  Country: GB (occurrence: GB)
  Receive Date: 20200228
  Receipt Date: 20200228
  Transmission Date: 20200409
  Serious: Yes (Hospitalization, Other)
  Sender: FDA-Public Use
  Company Number: GB-JNJFOC-20181141997

PATIENT
  Sex: Male

DRUGS (7)
  1. CALCIUM [Concomitant]
     Active Substance: CALCIUM
     Route: 065
  2. STELARA [Suspect]
     Active Substance: USTEKINUMAB
     Indication: CROHN^S DISEASE
     Route: 058
  3. FOLIC ACID. [Concomitant]
     Active Substance: FOLIC ACID
     Route: 065
  4. IRON [Concomitant]
     Active Substance: IRON
     Indication: ANAEMIA
     Route: 065
  5. BUDESONIDE. [Concomitant]
     Active Substance: BUDESONIDE
     Route: 065
  6. OMEPRAZOLE. [Concomitant]
     Active Substance: OMEPRAZOLE
     Route: 065
  7. STELARA [Suspect]
     Active Substance: USTEKINUMAB
     Route: 058
     Dates: start: 20181125

REACTIONS (6)
  - Somnolence [Unknown]
  - Crohn^s disease [Unknown]
  - Pain [Unknown]
  - Anaemia [Unknown]
  - Product use issue [Unknown]
  - Off label use [Unknown]
